FAERS Safety Report 9471190 (Version 2)
Quarter: 2013Q3

REPORT INFORMATION
  Report Type: Spontaneous
  Country: US (occurrence: US)
  Receive Date: 20130822
  Receipt Date: 20130924
  Transmission Date: 20140515
  Serious: Yes (Hospitalization)
  Sender: FDA-Public Use
  Company Number: US-B.I. PHARMACEUTICALS,INC./RIDGEFIELD-2013-BI-25808BP

PATIENT
  Age: 63 Year
  Sex: Male
  Weight: 108.86 kg

DRUGS (11)
  1. PRADAXA [Suspect]
     Indication: ATRIAL FIBRILLATION
     Dosage: 300 MG
     Route: 048
     Dates: start: 201205, end: 201208
  2. CLONEDINE [Concomitant]
  3. AMLODIPINE [Concomitant]
  4. FUROSEMIDE [Concomitant]
  5. GEMFIBROZIL [Concomitant]
  6. ALENDRONATE [Concomitant]
  7. OMEPRAZOLE [Concomitant]
  8. NOVOLOG MIX [Concomitant]
  9. METFORMIN [Concomitant]
  10. GLIPIZIDE [Concomitant]
  11. DITROPAN [Concomitant]

REACTIONS (3)
  - Pericardial effusion [Unknown]
  - Pericardial haemorrhage [Unknown]
  - Haemothorax [Unknown]
